FAERS Safety Report 9520904 (Version 1)
Quarter: 2013Q1

REPORT INFORMATION
  Report Type: Spontaneous
  Country: US (occurrence: None)
  Receive Date: 20130305
  Receipt Date: 20130305
  Transmission Date: 20140127
  Serious: Yes (Other)
  Sender: FDA-Public Use
  Company Number: 163-21880-12031737

PATIENT
  Age: 78 Year
  Sex: Female

DRUGS (1)
  1. REVLIMID [Suspect]
     Indication: PLASMA CELL MYELOMA
     Dosage: 25 MG, 21 IN 28 D, PO
     Route: 048
     Dates: start: 20120214

REACTIONS (7)
  - Full blood count decreased [None]
  - Drug intolerance [None]
  - Adverse drug reaction [None]
  - Skin exfoliation [None]
  - Rash [None]
  - Oedema peripheral [None]
  - Increased tendency to bruise [None]
